FAERS Safety Report 26184258 (Version 1)
Quarter: 2025Q4

REPORT INFORMATION
  Report Type: Report from Study
  Country: CO (occurrence: CO)
  Receive Date: 20251222
  Receipt Date: 20251222
  Transmission Date: 20260118
  Serious: Yes (Hospitalization)
  Sender: ABBVIE
  Company Number: CO-ABBVIE-6596099

PATIENT
  Age: 58 Year
  Sex: Female
  Weight: 56 kg

DRUGS (1)
  1. RINVOQ [Suspect]
     Active Substance: UPADACITINIB
     Indication: Colitis ulcerative
     Dosage: TAKES RINVOQ 2 TABLETS OF 15 MG
     Route: 048
     Dates: start: 20250326

REACTIONS (2)
  - Gait disturbance [Unknown]
  - Groin pain [Recovering/Resolving]

NARRATIVE: CASE EVENT DATE: 20250101
